FAERS Safety Report 5810092-0 (Version None)
Quarter: 2008Q3

REPORT INFORMATION
  Report Type: 
  Country: None (occurrence: None)
  Receive Date: 20080715
  Receipt Date: 20080712
  Transmission Date: 20090109
  Serious: Yes (Other)
  Sender: FDA-Public Use
  Company Number: US-BRISTOL-MYERS SQUIBB COMPANY-14262695

PATIENT
  Sex: Female

DRUGS (1)
  1. ENTECAVIR [Suspect]
     Indication: HEPATITIS B POSITIVE

REACTIONS (1)
  - MENTAL STATUS CHANGES [None]
